FAERS Safety Report 21378706 (Version 1)
Quarter: 2022Q3

REPORT INFORMATION
  Report Type: Report from Study
  Country: US (occurrence: US)
  Receive Date: 20220927
  Receipt Date: 20220927
  Transmission Date: 20221027
  Serious: No
  Sender: FDA-Public Use
  Company Number: US-ACADIA PHARMACEUTICALS INC.-ACA-2022-PIM-002993

PATIENT
  Age: 74 Year
  Sex: Male

DRUGS (8)
  1. NUPLAZID [Suspect]
     Active Substance: PIMAVANSERIN TARTRATE
     Indication: Parkinson^s disease psychosis
     Dosage: 34 MILLIGRAM, QD
     Route: 065
     Dates: start: 20220808
  2. ASPIRIN [Concomitant]
     Active Substance: ASPIRIN
  3. SINEMET [Concomitant]
     Active Substance: CARBIDOPA\LEVODOPA
  4. DONEPEZIL [Concomitant]
     Active Substance: DONEPEZIL
  5. FLONASE [Concomitant]
     Active Substance: FLUTICASONE PROPIONATE
  6. MIDODRINE [Concomitant]
     Active Substance: MIDODRINE
  7. ROSUVASTATIN [Concomitant]
     Active Substance: ROSUVASTATIN
  8. ZYRTEC [Concomitant]
     Active Substance: CETIRIZINE HYDROCHLORIDE

REACTIONS (2)
  - Drug ineffective [Not Recovered/Not Resolved]
  - Hallucination, visual [Not Recovered/Not Resolved]

NARRATIVE: CASE EVENT DATE: 20220831
